FAERS Safety Report 6042919-4 (Version None)
Quarter: 2009Q1

REPORT INFORMATION
  Report Type: 
  Country: None (occurrence: None)
  Receive Date: 20090119
  Receipt Date: 20090113
  Transmission Date: 20090719
  Serious: Yes (Life-Threatening, Hospitalization)
  Sender: FDA-Public Use
  Company Number: B0546536A

PATIENT
  Age: 95 Year
  Sex: Female

DRUGS (1)
  1. ARIXTRA [Suspect]
     Dosage: 1.5MG PER DAY
     Route: 058
     Dates: start: 20080926, end: 20081007

REACTIONS (5)
  - COMA [None]
  - DEPRESSED LEVEL OF CONSCIOUSNESS [None]
  - FALL [None]
  - SUBDURAL HAEMATOMA [None]
  - URINARY INCONTINENCE [None]
